FAERS Safety Report 6134644-6 (Version None)
Quarter: 2009Q1

REPORT INFORMATION
  Report Type: 
  Country: None (occurrence: None)
  Receive Date: 20090327
  Receipt Date: 20090318
  Transmission Date: 20090719
  Serious: Yes (Hospitalization, Other)
  Sender: FDA-Public Use
  Company Number: US-BIOGENIDEC-2008BI032474

PATIENT
  Age: 0 Day
  Sex: Male
  Weight: 1 kg

DRUGS (1)
  1. AVONEX [Suspect]
     Indication: DRUG EXPOSURE DURING PREGNANCY
     Route: 064
     Dates: start: 20060701, end: 20080228

REACTIONS (4)
  - FOETAL DISTRESS SYNDROME [None]
  - NEONATAL DISORDER [None]
  - SMALL FOR DATES BABY [None]
  - UMBILICAL CORD AROUND NECK [None]
